FAERS Safety Report 11115689 (Version 1)
Quarter: 2015Q2

REPORT INFORMATION
  Report Type: Spontaneous
  Country: US (occurrence: None)
  Receive Date: 20150514
  Receipt Date: 20150514
  Transmission Date: 20150821
  Serious: Yes (Other)
  Sender: FDA-Public Use
  Company Number: None

PATIENT
  Age: 34 Year
  Sex: Male

DRUGS (1)
  1. HUMIRA [Suspect]
     Active Substance: ADALIMUMAB

REACTIONS (5)
  - Injection site reaction [None]
  - Injection site swelling [None]
  - Injection site bruising [None]
  - Nasopharyngitis [None]
  - Injection site erythema [None]

NARRATIVE: CASE EVENT DATE: 20150508
